FAERS Safety Report 16743110 (Version 1)
Quarter: 2019Q3

REPORT INFORMATION
  Report Type: Spontaneous
  Country: GB (occurrence: GB)
  Receive Date: 20190827
  Receipt Date: 20190827
  Transmission Date: 20191005
  Serious: Yes (Other)
  Sender: FDA-Public Use
  Company Number: GB-SUN PHARMACEUTICAL INDUSTRIES LTD-2019RR-218828

PATIENT
  Sex: Male

DRUGS (1)
  1. CONTIFLO XL [Suspect]
     Active Substance: TAMSULOSIN HYDROCHLORIDE
     Indication: BENIGN PROSTATIC HYPERPLASIA
     Dosage: UNK
     Route: 065
     Dates: start: 201810

REACTIONS (4)
  - Gastrointestinal disorder [Recovering/Resolving]
  - Product substitution issue [Unknown]
  - Depression [Recovering/Resolving]
  - Asthenia [Recovering/Resolving]
